FAERS Safety Report 20651453 (Version 1)
Quarter: 2022Q1

REPORT INFORMATION
  Report Type: Report from Study
  Country: CO (occurrence: CO)
  Receive Date: 20220330
  Receipt Date: 20220330
  Transmission Date: 20220423
  Serious: Yes (Hospitalization, Other)
  Sender: FDA-Public Use
  Company Number: CO-ABBVIE-22K-036-4335805-00

PATIENT
  Sex: Male
  Weight: 70 kg

DRUGS (1)
  1. HUMIRA [Suspect]
     Active Substance: ADALIMUMAB
     Indication: Psoriatic arthropathy
     Route: 058
     Dates: start: 20201210, end: 20220223

REACTIONS (7)
  - Haemorrhage urinary tract [Recovering/Resolving]
  - Haemoglobin decreased [Recovering/Resolving]
  - Blood urine present [Recovering/Resolving]
  - Bladder cancer [Recovering/Resolving]
  - Weight decreased [Not Recovered/Not Resolved]
  - Asthenia [Recovering/Resolving]
  - Pain [Recovering/Resolving]

NARRATIVE: CASE EVENT DATE: 20220101
